FAERS Safety Report 9320307 (Version 3)
Quarter: 2013Q4

REPORT INFORMATION
  Report Type: Spontaneous
  Country: US (occurrence: US)
  Receive Date: 20130530
  Receipt Date: 20131115
  Transmission Date: 20140711
  Serious: Yes (Hospitalization)
  Sender: FDA-Public Use
  Company Number: US-B.I. PHARMACEUTICALS,INC./RIDGEFIELD-2013-BI-14535BP

PATIENT
  Age: 88 Year
  Sex: Male
  Weight: 77.11 kg

DRUGS (10)
  1. PRADAXA [Suspect]
     Indication: ANTICOAGULANT THERAPY
     Dosage: 300 MG
     Route: 048
     Dates: start: 20120611, end: 20120612
  2. AMARYL [Concomitant]
     Dosage: 5 MG
     Dates: start: 2012
  3. CATAPRES [Concomitant]
     Dosage: 0.2 MG
  4. DIOVAN [Concomitant]
     Dosage: 160 MG
     Dates: start: 1981
  5. FLOMAX [Concomitant]
     Dosage: 0.4 MG
     Dates: start: 2012
  6. GLUCOPHAGE [Concomitant]
     Dosage: 500 MG
     Dates: start: 201105
  7. NORVASC [Concomitant]
     Dosage: 2.5 MG
     Dates: start: 1990
  8. RESTORIL [Concomitant]
     Dosage: 15 MG
  9. SYNTHROID [Concomitant]
     Dosage: 0.125 MG
  10. VASOTEC [Concomitant]
     Dosage: 5 MG

REACTIONS (1)
  - Subdural haematoma [Unknown]
